FAERS Safety Report 7798094-9 (Version None)
Quarter: 2011Q4

REPORT INFORMATION
  Report Type: 
  Country: None (occurrence: None)
  Receive Date: 20111004
  Receipt Date: 20110921
  Transmission Date: 20120403
  Serious: Yes (Hospitalization, Other)
  Sender: FDA-Public Use
  Company Number: 2011MA012523

PATIENT
  Age: 59 Year
  Sex: Female

DRUGS (3)
  1. CLOZARIL [Suspect]
     Dosage: 300 MG
     Dates: start: 20110203, end: 20110406
  2. MIRTAZAPINE [Suspect]
  3. MIRTAZAPINE [Suspect]

REACTIONS (5)
  - OROPHARYNGEAL PAIN [None]
  - WHITE BLOOD CELL COUNT INCREASED [None]
  - NEUTROPHIL COUNT INCREASED [None]
  - AGRANULOCYTOSIS [None]
  - PYREXIA [None]
